FAERS Safety Report 25870692 (Version 1)
Quarter: 2025Q4

REPORT INFORMATION
  Report Type: Spontaneous
  Country: US (occurrence: US)
  Receive Date: 20251001
  Receipt Date: 20251001
  Transmission Date: 20260117
  Serious: No
  Sender: RECKITT BENCKISER
  Company Number: US-Indivior Limited-INDV-157830-2024

PATIENT
  Sex: Male

DRUGS (2)
  1. SUBLOCADE [Suspect]
     Active Substance: BUPRENORPHINE
     Indication: Drug dependence
     Dosage: LOW DOSE EVERY 5 MONTHS
     Route: 065
  2. SUBLOCADE [Suspect]
     Active Substance: BUPRENORPHINE

REACTIONS (2)
  - Inappropriate schedule of product discontinuation [Not Recovered/Not Resolved]
  - Inappropriate schedule of product administration [Not Recovered/Not Resolved]
